FAERS Safety Report 10944067 (Version 1)
Quarter: 2015Q1

REPORT INFORMATION
  Report Type: Spontaneous
  Country: US (occurrence: US)
  Receive Date: 20150323
  Receipt Date: 20150323
  Transmission Date: 20150721
  Serious: No
  Sender: FDA-Public Use
  Company Number: US-AMGEN-USASP2015024701

PATIENT
  Age: 58 Year
  Sex: Female

DRUGS (1)
  1. ENBREL [Suspect]
     Active Substance: ETANERCEPT
     Indication: PSORIASIS
     Dosage: 50 MG, QWK
     Route: 065
     Dates: start: 2000

REACTIONS (6)
  - Ear pain [Recovering/Resolving]
  - Psoriasis [Not Recovered/Not Resolved]
  - Upper respiratory tract infection [Recovering/Resolving]
  - Ear infection [Recovering/Resolving]
  - Nasopharyngitis [Recovering/Resolving]
  - Tympanic membrane perforation [Recovering/Resolving]

NARRATIVE: CASE EVENT DATE: 201502
